FAERS Safety Report 9216440 (Version 1)
Quarter: 2013Q2

REPORT INFORMATION
  Report Type: Spontaneous
  Country: IT (occurrence: None)
  Receive Date: 20130402
  Receipt Date: 20130402
  Transmission Date: 20140414
  Serious: Yes (Hospitalization)
  Sender: FDA-Public Use
  Company Number: AUR-APL-2013-02626

PATIENT
  Age: 86 Year
  Sex: Female

DRUGS (7)
  1. METFORMIN [Suspect]
     Indication: DIABETES MELLITUS
     Dosage: 3 DOSAGE FORMS, 1 D, ORAL
     Route: 048
     Dates: start: 20120101, end: 20130301
  2. DILATREND [Concomitant]
  3. LASIX (FUROSEMIDE) [Concomitant]
  4. APROVEL (IRBESARTAN) [Concomitant]
  5. TORVAST (ATORVASTATIN CALCIUM) [Concomitant]
  6. CATAPRESAN TTS (CLONIDINE) [Concomitant]
  7. CARDIRENE (ACETYLSALICYLATE LYSINE) [Concomitant]

REACTIONS (2)
  - Renal failure acute [None]
  - General physical health deterioration [None]
